FAERS Safety Report 13940201 (Version 13)
Quarter: 2018Q2

REPORT INFORMATION
  Report Type: Spontaneous
  Country: US (occurrence: US)
  Receive Date: 20170906
  Receipt Date: 20180625
  Transmission Date: 20180711
  Serious: Yes (Other)
  Sender: FDA-Public Use
  Company Number: US-INCYTE CORPORATION-2017IN007324

PATIENT

DRUGS (17)
  1. FIBER [Concomitant]
     Active Substance: PSYLLIUM HUSK
     Indication: PRODUCT USED FOR UNKNOWN INDICATION
     Dosage: 1 UNK, QD
     Route: 065
  2. ASPIRIN                            /00002701/ [Concomitant]
     Active Substance: ASPIRIN
     Indication: PRODUCT USED FOR UNKNOWN INDICATION
     Dosage: 81 MG, UNK
     Route: 065
  3. ASPIRIN                            /00002701/ [Suspect]
     Active Substance: ASPIRIN
     Indication: PRODUCT USED FOR UNKNOWN INDICATION
     Dosage: UNK
     Route: 065
     Dates: end: 201802
  4. MULTIVITAMIN                       /00097801/ [Concomitant]
     Active Substance: VITAMINS
     Indication: PRODUCT USED FOR UNKNOWN INDICATION
     Route: 065
  5. JAKAFI [Interacting]
     Active Substance: RUXOLITINIB
     Indication: POLYCYTHAEMIA VERA
     Dosage: 5 MG, BID
     Route: 048
  6. JAKAFI [Interacting]
     Active Substance: RUXOLITINIB
     Dosage: 5 MG, QD
     Route: 065
  7. METOPROLOL TARTRATE. [Concomitant]
     Active Substance: METOPROLOL TARTRATE
     Indication: PRODUCT USED FOR UNKNOWN INDICATION
     Route: 065
  8. MISOPROSTOL. [Concomitant]
     Active Substance: MISOPROSTOL
     Indication: PRODUCT USED FOR UNKNOWN INDICATION
     Route: 065
  9. JAKAFI [Suspect]
     Active Substance: RUXOLITINIB
     Indication: MYELOFIBROSIS
     Dosage: 5 MG, BID
     Route: 048
     Dates: start: 20170820
  10. JAKAFI [Interacting]
     Active Substance: RUXOLITINIB
     Dosage: 5 MG, QD
     Route: 048
     Dates: start: 201712
  11. PROTONIX [Interacting]
     Active Substance: PANTOPRAZOLE SODIUM
     Indication: PRODUCT USED FOR UNKNOWN INDICATION
     Dosage: NOT SPECIFIED
     Route: 065
  12. PANTOPRAZOLE [Interacting]
     Active Substance: PANTOPRAZOLE
     Indication: PRODUCT USED FOR UNKNOWN INDICATION
     Dosage: UNK
     Route: 065
  13. DIPHENOXYLATE [Concomitant]
     Active Substance: DIPHENOXYLATE
     Indication: PRODUCT USED FOR UNKNOWN INDICATION
     Dosage: UNK
     Route: 065
  14. JAKAFI [Interacting]
     Active Substance: RUXOLITINIB
     Dosage: 5 MG, BID
     Route: 048
  15. JAKAFI [Interacting]
     Active Substance: RUXOLITINIB
     Dosage: 5 MG, QD
     Route: 048
     Dates: start: 20171004
  16. CYTOTEC [Concomitant]
     Active Substance: MISOPROSTOL
     Indication: PRODUCT USED FOR UNKNOWN INDICATION
     Route: 065
  17. METOPROLOL. [Concomitant]
     Active Substance: METOPROLOL
     Indication: PRODUCT USED FOR UNKNOWN INDICATION
     Dosage: 50 MG, BID
     Route: 065

REACTIONS (40)
  - Somnolence [Unknown]
  - Haemoglobin decreased [Unknown]
  - Dyspepsia [Unknown]
  - Sleep disorder [Unknown]
  - Back disorder [Not Recovered/Not Resolved]
  - Feeling abnormal [Unknown]
  - Energy increased [Unknown]
  - Red blood cell count decreased [Unknown]
  - Splenomegaly [Not Recovered/Not Resolved]
  - Peptic ulcer [Unknown]
  - Hot flush [Unknown]
  - Weight decreased [Not Recovered/Not Resolved]
  - Malaise [Unknown]
  - Hypersomnia [Unknown]
  - Drug hypersensitivity [Unknown]
  - Platelet count decreased [Unknown]
  - Headache [Recovered/Resolved]
  - Cough [Unknown]
  - Therapeutic response unexpected [Unknown]
  - Dry skin [Unknown]
  - Influenza like illness [Unknown]
  - Sinusitis [Unknown]
  - White blood cell count decreased [Unknown]
  - Asthenia [Unknown]
  - Gastric ulcer haemorrhage [Unknown]
  - Hyperhidrosis [Unknown]
  - Gingival bleeding [Unknown]
  - Pain in extremity [Unknown]
  - Dyspnoea [Unknown]
  - Pruritus [Unknown]
  - Hepatomegaly [Unknown]
  - Night sweats [Not Recovered/Not Resolved]
  - Erythema [Unknown]
  - Drug interaction [Unknown]
  - Abdominal pain upper [Unknown]
  - Fatigue [Unknown]
  - Abdominal pain [Unknown]
  - Diarrhoea [Recovering/Resolving]
  - Contusion [Recovered/Resolved]
  - Haematocrit decreased [Unknown]

NARRATIVE: CASE EVENT DATE: 201708
